FAERS Safety Report 25499697 (Version 2)
Quarter: 2025Q4

REPORT INFORMATION
  Report Type: Report from Study
  Country: US (occurrence: US)
  Receive Date: 20250701
  Receipt Date: 20251001
  Transmission Date: 20260118
  Serious: Yes (Other)
  Sender: UCB
  Company Number: US-UCBSA-2025039261

PATIENT
  Sex: Male

DRUGS (2)
  1. BIMEKIZUMAB [Suspect]
     Active Substance: BIMEKIZUMAB
     Indication: Hidradenitis
     Dosage: 320 MILLIGRAM, EV 2 WEEKS(QOW), AT WEEKS 0, 2, 4, 6, 8, 10, 12, 14, AND 16,THEN EVERY 4 WEEKS THEREA
     Route: 058
     Dates: start: 20250501
  2. OZEMPIC [Concomitant]
     Active Substance: SEMAGLUTIDE
     Indication: Diabetes mellitus
     Dosage: UNK
     Dates: start: 2025

REACTIONS (5)
  - Renal impairment [Not Recovered/Not Resolved]
  - Nephrolithiasis [Recovered/Resolved]
  - Renal stone removal [Recovered/Resolved]
  - Hidradenitis [Not Recovered/Not Resolved]
  - Condition aggravated [Not Recovered/Not Resolved]

NARRATIVE: CASE EVENT DATE: 20250101
